FAERS Safety Report 4513735-7 (Version None)
Quarter: 2004Q4

REPORT INFORMATION
  Report Type: 
  Country: None (occurrence: None)
  Receive Date: 20041130
  Receipt Date: 20040907
  Transmission Date: 20050328
  Serious: No
  Sender: FDA-Public Use
  Company Number: US-GLAXOSMITHKLINE-A0524737A

PATIENT
  Age: 76 Year
  Sex: Female

DRUGS (6)
  1. WELLBUTRIN XL [Suspect]
     Indication: ILL-DEFINED DISORDER
     Dosage: 150MG PER DAY
     Route: 048
     Dates: start: 20040830, end: 20040902
  2. AMOXIL [Suspect]
  3. TOPROL-XL [Concomitant]
  4. LIPITOR [Concomitant]
  5. NEXIUM [Concomitant]
  6. PLAVIX [Concomitant]

REACTIONS (2)
  - DIARRHOEA [None]
  - HYPERHIDROSIS [None]
